FAERS Safety Report 25406819 (Version 1)
Quarter: 2025Q2

REPORT INFORMATION
  Report Type: Report from Study
  Country: CA (occurrence: CA)
  Receive Date: 20250606
  Receipt Date: 20250606
  Transmission Date: 20250717
  Serious: Yes (Other)
  Sender: AMARIN
  Company Number: CA-Amarin Pharma  Inc-2025AMR000415

PATIENT
  Age: 78 Year
  Sex: Male

DRUGS (1)
  1. VASCEPA [Suspect]
     Active Substance: ICOSAPENT ETHYL
     Indication: Disease risk factor
     Dates: start: 20250428

REACTIONS (2)
  - Glaucoma [Unknown]
  - Cataract [Unknown]

NARRATIVE: CASE EVENT DATE: 20250101
